FAERS Safety Report 4307665-3 (Version None)
Quarter: 2004Q1

REPORT INFORMATION
  Report Type: 
  Country: None (occurrence: None)
  Receive Date: 20040225
  Receipt Date: 20030905
  Transmission Date: 20041129
  Serious: Yes (Life-Threatening, Hospitalization, Disabling, Other)
  Sender: FDA-Public Use
  Company Number: WAES 0309USA00741

PATIENT
  Age: 72 Year
  Sex: Male
  Weight: 91.173 kg

DRUGS (15)
  1. ZOCOR [Suspect]
     Indication: ATHEROSCLEROSIS
     Dosage: 80 MG/DAILY/PO; 40 MG/DAILY/PO
     Route: 048
     Dates: end: 20030817
  2. ZOCOR [Suspect]
     Indication: BLOOD CHOLESTEROL INCREASED
     Dosage: 80 MG/DAILY/PO; 40 MG/DAILY/PO
     Route: 048
     Dates: end: 20030817
  3. ZOCOR [Suspect]
     Indication: ATHEROSCLEROSIS
     Dosage: 80 MG/DAILY/PO; 40 MG/DAILY/PO
     Route: 048
     Dates: start: 20030818, end: 20030831
  4. ZOCOR [Suspect]
     Indication: BLOOD CHOLESTEROL INCREASED
     Dosage: 80 MG/DAILY/PO; 40 MG/DAILY/PO
     Route: 048
     Dates: start: 20030818, end: 20030831
  5. COUMADIN [Concomitant]
  6. FOLTX [Concomitant]
  7. NITRO [Concomitant]
  8. PREVACID [Concomitant]
  9. PRINIVIL [Concomitant]
  10. TIAZAC [Concomitant]
  11. ASPIRIN [Concomitant]
  12. GEMFIBROZIL [Concomitant]
  13. GLIPIZIDE [Concomitant]
  14. METOPROLOL [Concomitant]
  15. VITAMIN B COMPLEX CAP [Concomitant]

REACTIONS (2)
  - RENAL FAILURE [None]
  - RHABDOMYOLYSIS [None]
